FAERS Safety Report 17581916 (Version 1)
Quarter: 2020Q1

REPORT INFORMATION
  Report Type: Spontaneous
  Country: US (occurrence: US)
  Receive Date: 20200323
  Receipt Date: 20200323
  Transmission Date: 20200409
  Serious: No
  Sender: FDA-Public Use
  Company Number: None

PATIENT
  Age: 65 Year
  Sex: Female
  Weight: 47.63 kg

DRUGS (11)
  1. ELETRIPTAN. [Concomitant]
     Active Substance: ELETRIPTAN
  2. VITAMIN B12 [Concomitant]
     Active Substance: CYANOCOBALAMIN
  3. VIT. D [Concomitant]
  4. BIOTIN [Concomitant]
     Active Substance: BIOTIN
  5. EMGALITY [Suspect]
     Active Substance: GALCANEZUMAB-GNLM
     Indication: MIGRAINE
     Dosage: ?          QUANTITY:1 DF DOSAGE FORM;?
     Dates: start: 20190618
  6. GLUCOSAMINE/CHONDROITIN [Concomitant]
  7. RELPAX [Concomitant]
     Active Substance: ELETRIPTAN HYDROBROMIDE
  8. COLLAGEN [Concomitant]
     Active Substance: COLLAGEN
  9. CALCIUM/MAGNESIUM/D [Concomitant]
  10. PROBIOTICS [Concomitant]
     Active Substance: PROBIOTICS NOS
  11. MULTIVITAMIN/MINERAL [Concomitant]

REACTIONS (5)
  - Injection site swelling [None]
  - Injection site erythema [None]
  - Diarrhoea [None]
  - Injection site pain [None]
  - Migraine [None]

NARRATIVE: CASE EVENT DATE: 20190618
